FAERS Safety Report 19947749 (Version 1)
Quarter: 2021Q4

REPORT INFORMATION
  Report Type: Spontaneous
  Country: PT (occurrence: PT)
  Receive Date: 20211013
  Receipt Date: 20211013
  Transmission Date: 20220303
  Serious: Yes (Hospitalization, Other)
  Sender: FDA-Public Use
  Company Number: None

PATIENT

DRUGS (3)
  1. FUROSEMIDE [Suspect]
     Active Substance: FUROSEMIDE
     Indication: Product used for unknown indication
     Dosage: 40 MG, QD
     Route: 065
  2. DAPAGLIFLOZIN [Suspect]
     Active Substance: DAPAGLIFLOZIN
     Indication: Diabetes mellitus
     Dosage: 10 MG, QD
     Route: 048
  3. METFORMIN [Suspect]
     Active Substance: METFORMIN HYDROCHLORIDE
     Indication: Diabetes mellitus
     Dosage: 1700 MG, QD
     Route: 065

REACTIONS (13)
  - Diabetic ketoacidosis [Unknown]
  - Acute kidney injury [Unknown]
  - Fatigue [Unknown]
  - Dehydration [Unknown]
  - Urine ketone body present [Unknown]
  - Diabetic metabolic decompensation [Unknown]
  - Cardiac failure [Unknown]
  - Off label use [Unknown]
  - Drug interaction [Unknown]
  - Drug ineffective [Unknown]
  - Metabolic acidosis [Unknown]
  - Food refusal [Unknown]
  - Hypernatraemia [Unknown]
